FAERS Safety Report 8807182 (Version 1)
Quarter: 2012Q4

REPORT INFORMATION
  Report Type: 
  Country: GB (occurrence: GB)
  Receive Date: 20120925
  Receipt Date: 20120925
  Transmission Date: 20130627
  Serious: Yes (Other)
  Sender: FDA-Public Use
  Company Number: GB-PFIZER INC-2012232108

PATIENT
  Age: 20 Year
  Sex: Female
  Weight: 55 kg

DRUGS (1)
  1. DEPO-PROVERA [Suspect]
     Indication: CONTRACEPTION
     Dosage: 150 mg, every 3 months
     Route: 051
     Dates: start: 20110502, end: 20120502

REACTIONS (1)
  - Coital bleeding [Recovered/Resolved]
